FAERS Safety Report 7840941 (Version 5)
Quarter: 2014Q1

REPORT INFORMATION
  Report Type: Spontaneous
  Country: US (occurrence: US)
  Receive Date: 20110304
  Receipt Date: 20140205
  Transmission Date: 20141002
  Serious: Yes (Other)
  Sender: FDA-Public Use
  Company Number: US-BAYER-2011-019992

PATIENT
  Age: 25 Year
  Sex: Female

DRUGS (1)
  1. YAZ [Suspect]
     Indication: CONTRACEPTION
     Dosage: UNK
     Route: 048
     Dates: start: 2003, end: 200510

REACTIONS (7)
  - Gallbladder non-functioning [None]
  - Hypertension [None]
  - Gallbladder pain [None]
  - Injury [None]
  - Pain [None]
  - Biliary dyskinesia [None]
  - Cholecystitis chronic [None]
